FAERS Safety Report 5055530-9 (Version None)
Quarter: 2006Q3

REPORT INFORMATION
  Report Type: 
  Country: None (occurrence: None)
  Receive Date: 20060714
  Receipt Date: 20060628
  Transmission Date: 20061208
  Serious: Yes (Hospitalization)
  Sender: FDA-Public Use
  Company Number: 163-20785-06060911

PATIENT
  Age: 76 Year
  Sex: Male

DRUGS (1)
  1. THALOMID [Suspect]
     Indication: MULTIPLE MYELOMA
     Dosage: 50 MG, 1 IN 1 D, ORAL
     Route: 048
     Dates: start: 20060224

REACTIONS (1)
  - COLECTOMY [None]
